FAERS Safety Report 4635727-X (Version None)
Quarter: 2005Q2

REPORT INFORMATION
  Report Type: 
  Country: None (occurrence: None)
  Receive Date: 20050414
  Receipt Date: 20050329
  Transmission Date: 20051028
  Serious: Yes (Hospitalization)
  Sender: FDA-Public Use
  Company Number: EWC050343276

PATIENT
  Sex: Male

DRUGS (1)
  1. HUMULIN 70/30 [Suspect]
     Indication: DIABETES MELLITUS
     Dosage: 57 IU DAY

REACTIONS (3)
  - DRUG INEFFECTIVE [None]
  - HYPERGLYCAEMIA [None]
  - SURGERY [None]
